FAERS Safety Report 25596576 (Version 1)
Quarter: 2025Q3

REPORT INFORMATION
  Report Type: Spontaneous
  Country: CA (occurrence: CA)
  Receive Date: 20250723
  Receipt Date: 20250723
  Transmission Date: 20251020
  Serious: Yes (Death)
  Sender: PFIZER
  Company Number: CA-PFIZER INC-202300116870

PATIENT
  Age: 88 Year
  Sex: Male

DRUGS (11)
  1. VYNDAQEL [Suspect]
     Active Substance: TAFAMIDIS MEGLUMINE
     Indication: Cardiac amyloidosis
     Dosage: 20 MG, FOUR TIMES A DAY
     Route: 048
     Dates: start: 20220831
  2. APIXABAN [Concomitant]
     Active Substance: APIXABAN
  3. CICLESONIDE [Concomitant]
     Active Substance: CICLESONIDE
  4. DUTASTERIDE [Concomitant]
     Active Substance: DUTASTERIDE
  5. FUROSEMIDE [Concomitant]
     Active Substance: FUROSEMIDE
  6. FUSIDIC ACID [Concomitant]
     Active Substance: FUSIDIC ACID
  7. IPRATROPIUM BROMIDE [Concomitant]
     Active Substance: IPRATROPIUM BROMIDE
  8. METOPROLOL [Concomitant]
     Active Substance: METOPROLOL
  9. PERINDOPRIL [Concomitant]
     Active Substance: PERINDOPRIL
  10. RABEPRAZOLE [Concomitant]
     Active Substance: RABEPRAZOLE
  11. TAMSULOSIN [Concomitant]
     Active Substance: TAMSULOSIN

REACTIONS (2)
  - Death [Fatal]
  - Off label use [Unknown]

NARRATIVE: CASE EVENT DATE: 20220831
